FAERS Safety Report 6014517-X (Version None)
Quarter: 2008Q4

REPORT INFORMATION
  Report Type: 
  Country: None (occurrence: None)
  Receive Date: 20081219
  Receipt Date: 20080902
  Transmission Date: 20090506
  Serious: No
  Sender: FDA-Public Use
  Company Number: A0739908A

PATIENT
  Age: 68 Year
  Sex: Male

DRUGS (6)
  1. AVODART [Suspect]
     Indication: BENIGN PROSTATIC HYPERPLASIA
     Dosage: .5MG PER DAY
     Route: 048
     Dates: start: 20080714
  2. LIPITOR [Concomitant]
  3. COSOPT [Concomitant]
  4. ALTHESIN [Concomitant]
  5. UNKNOWN MEDICATION [Concomitant]
  6. FLOMAX [Concomitant]

REACTIONS (1)
  - DYSURIA [None]
